FAERS Safety Report 7879798-6 (Version None)
Quarter: 2011Q4

REPORT INFORMATION
  Report Type: 
  Country: None (occurrence: None)
  Receive Date: 20111101
  Receipt Date: 20111018
  Transmission Date: 20120403
  Serious: Yes (Hospitalization, Other)
  Sender: FDA-Public Use
  Company Number: ES-JNJFOC-20111009132

PATIENT
  Age: 20 Month
  Sex: Female

DRUGS (1)
  1. FENTANYL-100 [Suspect]
     Indication: ACCIDENTAL EXPOSURE
     Route: 062

REACTIONS (8)
  - OXYGEN SATURATION DECREASED [None]
  - ACCIDENTAL EXPOSURE [None]
  - BRADYCARDIA [None]
  - DEPRESSED LEVEL OF CONSCIOUSNESS [None]
  - BREATH SOUNDS ABNORMAL [None]
  - HYPOTENSION [None]
  - OFF LABEL USE [None]
  - HYPOPNOEA [None]
